FAERS Safety Report 21669388 (Version 2)
Quarter: 2022Q4

REPORT INFORMATION
  Report Type: Spontaneous
  Country: RU (occurrence: None)
  Receive Date: 20221201
  Receipt Date: 20221209
  Transmission Date: 20230113
  Serious: Yes (Life-Threatening, Hospitalization)
  Sender: FDA-Public Use
  Company Number: 2022A394033

PATIENT
  Age: 4 Month
  Sex: Female
  Weight: 3.7 kg

DRUGS (6)
  1. PALIVIZUMAB [Suspect]
     Active Substance: PALIVIZUMAB
     Indication: Respiratory syncytial virus infection
     Dosage: 15 MG/KG
     Route: 030
     Dates: start: 20220405
  2. BUDESONIDE [Suspect]
     Active Substance: BUDESONIDE
     Indication: Bronchiolitis
     Dosage: 125 MCG TWICE PER DAY
     Route: 055
  3. BUDESONIDE [Suspect]
     Active Substance: BUDESONIDE
     Indication: Bronchiolitis
     Dosage: 0.25 MG TO 2 TIMES A DAY
     Route: 055
  4. IPRATROPIUM BROMIDE + FENOTEROL HYDROBROMIDE [Concomitant]
     Dosage: 4 DROPS 3 TIMES A DAY
     Route: 055
  5. IPRATROPIUM BROMIDE + FENOTEROL HYDROBROMIDE [Concomitant]
     Dosage: 1 DROP/KG UP TO 4 TIMES A DAY
     Route: 055
  6. AMOXICILLIN\CLAVULANATE POTASSIUM [Concomitant]
     Active Substance: AMOXICILLIN\CLAVULANATE POTASSIUM
     Dosage: 90 MG/KG A DAY
     Route: 041

REACTIONS (2)
  - Respiratory syncytial virus bronchiolitis [Recovered/Resolved]
  - Off label use [Unknown]
